FAERS Safety Report 8605733-9 (Version None)
Quarter: 2012Q3

REPORT INFORMATION
  Report Type: 
  Country: None (occurrence: None)
  Receive Date: 20120820
  Receipt Date: 20120806
  Transmission Date: 20120928
  Serious: Yes (Death, Hospitalization, Other)
  Sender: FDA-Public Use
  Company Number: US-JNJFOC-20120711674

PATIENT
  Sex: Female
  Weight: 59.88 kg

DRUGS (21)
  1. NEURONTIN [Concomitant]
  2. ATARAX [Concomitant]
  3. PROTONIX [Concomitant]
  4. PREDNISONE TAB [Concomitant]
  5. MORPHINE SULFATE [Concomitant]
  6. PREDNISONE TAB [Concomitant]
  7. TYLENOL [Concomitant]
  8. MULTIVITAMIN [Concomitant]
  9. MS CONTIN [Concomitant]
     Route: 048
  10. REMICADE [Suspect]
     Route: 042
     Dates: start: 20120328
  11. ROCALTROL [Concomitant]
  12. VITAMIN D [Concomitant]
  13. FOLIC ACID [Concomitant]
  14. MAG-TAB [Concomitant]
  15. BICARBONATE [Concomitant]
  16. REMICADE [Suspect]
     Route: 042
     Dates: start: 20120426
  17. NORVASC [Concomitant]
     Route: 048
  18. CELEXA [Concomitant]
  19. ZOFRAN [Concomitant]
  20. REMICADE [Suspect]
     Indication: CROHN'S DISEASE
     Dosage: 4 VIALS
     Route: 042
     Dates: start: 20120314
  21. COUMADIN [Concomitant]

REACTIONS (11)
  - ELECTROLYTE IMBALANCE [None]
  - DEEP VEIN THROMBOSIS [None]
  - HYPOVOLAEMIC SHOCK [None]
  - HEPATIC ENZYME INCREASED [None]
  - COAGULOPATHY [None]
  - HYPOTENSION [None]
  - SEPSIS SYNDROME [None]
  - NEUROPATHY PERIPHERAL [None]
  - RENAL FAILURE [None]
  - THROMBOCYTOPENIA [None]
  - URINARY TRACT INFECTION [None]
